FAERS Safety Report 19651509 (Version 2)
Quarter: 2021Q3

REPORT INFORMATION
  Report Type: Spontaneous
  Country: US (occurrence: US)
  Receive Date: 20210803
  Receipt Date: 20210803
  Transmission Date: 20211014
  Serious: Yes (Hospitalization, Other)
  Sender: FDA-Public Use
  Company Number: US-GILEAD-2021-0542584

PATIENT
  Age: 59 Year
  Sex: Male

DRUGS (2)
  1. SOFOSBUVIR;VELPATASVIR [Suspect]
     Active Substance: SOFOSBUVIR\VELPATASVIR
     Indication: CHRONIC HEPATITIS C
     Dosage: 1 DOSAGE FORM, QD
     Route: 048
  2. MULTI VITAMINS + MINERALS [Concomitant]
     Active Substance: MINERALS\VITAMINS

REACTIONS (4)
  - Intentional dose omission [Unknown]
  - Skin laceration [Recovered/Resolved]
  - Sepsis [Recovered/Resolved]
  - Localised infection [Recovered/Resolved]
